FAERS Safety Report 7562955-6 (Version None)
Quarter: 2011Q2

REPORT INFORMATION
  Report Type: 
  Country: None (occurrence: None)
  Receive Date: 20110621
  Receipt Date: 20110621
  Transmission Date: 20111010
  Serious: Yes (Other)
  Sender: FDA-Public Use
  Company Number: None

PATIENT
  Sex: Female
  Weight: 63.6 kg

DRUGS (9)
  1. DEXAMETHASONE [Concomitant]
  2. LEVETIRACETAM [Concomitant]
  3. LEVOFLOXACIN [Concomitant]
  4. SIMVASTATIN [Concomitant]
  5. EVEROLIMUS [Suspect]
     Dosage: 82.5 MG
     Dates: end: 20110606
  6. PIPERACILLIN AND TAZOBACTAM [Concomitant]
  7. TEMOZOLOMIDE [Suspect]
     Dosage: 3960 MG
     Dates: end: 20110606
  8. PANTOPRAZOLE [Concomitant]
  9. PAROXETINE HCL [Concomitant]

REACTIONS (6)
  - THROMBOCYTOPENIA [None]
  - LETHARGY [None]
  - ANAEMIA [None]
  - PYREXIA [None]
  - EPISTAXIS [None]
  - NEUTROPENIA [None]
